FAERS Safety Report 4830378-6 (Version None)
Quarter: 2005Q4

REPORT INFORMATION
  Report Type: 
  Country: None (occurrence: None)
  Receive Date: 20051114
  Receipt Date: 20051102
  Transmission Date: 20060501
  Serious: Yes (Other)
  Sender: FDA-Public Use
  Company Number: US_0505117843

PATIENT
  Age: 79 Year
  Sex: Male
  Weight: 58 kg

DRUGS (1)
  1. FORTEO [Suspect]
     Indication: OSTEOPOROSIS
     Dosage: 20 UG/1 DAY
     Dates: start: 20040315, end: 20050520

REACTIONS (6)
  - ANGIOSARCOMA [None]
  - HAEMORRHAGIC TUMOUR NECROSIS [None]
  - OSTEONECROSIS [None]
  - PHARMACEUTICAL PRODUCT COMPLAINT [None]
  - SCOTOMA [None]
  - TREATMENT NONCOMPLIANCE [None]
